FAERS Safety Report 26078287 (Version 1)
Quarter: 2025Q4

REPORT INFORMATION
  Report Type: Spontaneous
  Country: AU (occurrence: AU)
  Receive Date: 20251122
  Receipt Date: 20251122
  Transmission Date: 20260117
  Serious: Yes (Death)
  Sender: AMGEN
  Company Number: AU-AMGEN-AUSSP2025224200

PATIENT

DRUGS (2)
  1. PROLIA [Suspect]
     Active Substance: DENOSUMAB
     Indication: Osteoporosis
     Dosage: UNK
     Route: 065
  2. ROMOSOZUMAB [Suspect]
     Active Substance: ROMOSOZUMAB
     Indication: Osteoporosis
     Dosage: UNK
     Route: 065

REACTIONS (1)
  - Death [Fatal]
